FAERS Safety Report 5622817-8 (Version None)
Quarter: 2008Q1

REPORT INFORMATION
  Report Type: 
  Country: None (occurrence: None)
  Receive Date: 20080212
  Receipt Date: 20080208
  Transmission Date: 20080703
  Serious: Yes (Other)
  Sender: FDA-Public Use
  Company Number: DE-BRISTOL-MYERS SQUIBB COMPANY-14064083

PATIENT
  Sex: Female
  Weight: 100 kg

DRUGS (4)
  1. TAXOL [Suspect]
     Indication: BREAST CANCER
     Dates: start: 20070531, end: 20070531
  2. CYCLOPHOSPHAMIDE [Suspect]
  3. EPIRUBICIN [Suspect]
  4. HERCEPTIN [Concomitant]

REACTIONS (1)
  - NEUROPATHY PERIPHERAL [None]
